FAERS Safety Report 17505531 (Version 1)
Quarter: 2020Q1

REPORT INFORMATION
  Report Type: Report from Study
  Country: US (occurrence: US)
  Receive Date: 20200306
  Receipt Date: 20200306
  Transmission Date: 20200409
  Serious: No
  Sender: FDA-Public Use
  Company Number: NVSC2020US063312

PATIENT
  Age: 4 Year
  Sex: Male
  Weight: 27.7 kg

DRUGS (2)
  1. GSK1120212 [Suspect]
     Active Substance: TRAMETINIB
     Indication: GANGLIOGLIOMA
     Dosage: 0.66 MG (0.05 MG/ML)
     Route: 048
     Dates: start: 20191114
  2. GSK2118436 [Suspect]
     Active Substance: DABRAFENIB
     Indication: GANGLIOGLIOMA
     Dosage: 40 MG, BID
     Route: 048
     Dates: start: 20191114

REACTIONS (3)
  - Ingrowing nail [Recovered/Resolved]
  - Rash [Unknown]
  - Conjunctivitis [Recovered/Resolved]

NARRATIVE: CASE EVENT DATE: 20200123
